FAERS Safety Report 4415551-3 (Version None)
Quarter: 2004Q3

REPORT INFORMATION
  Report Type: 
  Country: None (occurrence: None)
  Receive Date: 20040804
  Receipt Date: 20030929
  Transmission Date: 20050211
  Serious: Yes (Other)
  Sender: FDA-Public Use
  Company Number: US-MERCK-0310USA00105

PATIENT
  Sex: Female
  Weight: 86 kg

DRUGS (7)
  1. HORMONES (UNSPECIFIED) [Concomitant]
     Route: 065
  2. MAXZIDE [Concomitant]
     Route: 065
  3. MOBIC [Concomitant]
     Indication: PAIN IN EXTREMITY
     Route: 065
  4. TOPROL-XL [Concomitant]
     Indication: HYPERTENSION
     Route: 065
  5. TOPROL-XL [Concomitant]
     Indication: CARDIAC DISORDER
     Route: 065
  6. VIOXX [Suspect]
     Indication: PAIN
     Route: 048
     Dates: start: 19990101
  7. TRAZODONE HYDROCHLORIDE [Concomitant]
     Route: 065
     Dates: start: 20010709

REACTIONS (9)
  - BLOOD PRESSURE INCREASED [None]
  - CARDIAC DISORDER [None]
  - FALL [None]
  - GASTRIC DISORDER [None]
  - HYSTERECTOMY [None]
  - MITRAL VALVE PROLAPSE [None]
  - SUPRAVENTRICULAR TACHYCARDIA [None]
  - UPPER LIMB FRACTURE [None]
  - WEIGHT INCREASED [None]
